FAERS Safety Report 5887453-7 (Version None)
Quarter: 2008Q3

REPORT INFORMATION
  Report Type: 
  Country: None (occurrence: None)
  Receive Date: 20080917
  Receipt Date: 20080917
  Transmission Date: 20090109
  Serious: Yes (Other)
  Sender: FDA-Public Use
  Company Number: None

PATIENT
  Age: 74 Year
  Sex: Female
  Weight: 56.6996 kg

DRUGS (2)
  1. VYTORIN [Suspect]
     Indication: BLOOD CHOLESTEROL
     Dosage: 1 TABLET DAILEY ORAL (TWO 5 DAY PERIODS JUNE 07)
     Route: 048
     Dates: start: 20070601
  2. VYTORIN [Suspect]
     Indication: BLOOD CHOLESTEROL
     Dosage: 1 TABLET DAILEY ORAL (TWO 5 DAY PERIODS JUNE 07)
     Route: 048
     Dates: start: 20070601

REACTIONS (2)
  - ABDOMINAL PAIN UPPER [None]
  - DIARRHOEA [None]
